FAERS Safety Report 10264490 (Version 1)
Quarter: 2014Q2

REPORT INFORMATION
  Report Type: Report from Study
  Country: US (occurrence: US)
  Receive Date: 20140627
  Receipt Date: 20140627
  Transmission Date: 20141212
  Serious: Yes (Other)
  Sender: FDA-Public Use
  Company Number: US-ROCHE-1424951

PATIENT
  Sex: Female
  Weight: 180 kg

DRUGS (6)
  1. RITUXAN [Suspect]
     Indication: MYASTHENIA GRAVIS
     Route: 042
     Dates: start: 2007
  2. TRIAMTERENE [Suspect]
     Indication: BLOOD PRESSURE
     Route: 048
  3. VITAMIN B12 [Suspect]
     Indication: PRODUCT USED FOR UNKNOWN INDICATION
     Route: 065
  4. SIMVASTATIN [Concomitant]
     Indication: BLOOD CHOLESTEROL
     Route: 048
  5. LEVOTHYROXINE [Concomitant]
     Indication: THYROID DISORDER
     Route: 048
  6. CALAMINE LOTION [Concomitant]
     Indication: DERMATITIS
     Route: 061
     Dates: start: 201306

REACTIONS (2)
  - Dermatitis [Not Recovered/Not Resolved]
  - Arthropathy [Not Recovered/Not Resolved]
